FAERS Safety Report 19952610 (Version 1)
Quarter: 2021Q4

REPORT INFORMATION
  Report Type: Spontaneous
  Country: DE (occurrence: DE)
  Receive Date: 20211014
  Receipt Date: 20211014
  Transmission Date: 20220303
  Serious: Yes (Other)
  Sender: FDA-Public Use
  Company Number: DE-GLAXOSMITHKLINE-DE2021EME200507

PATIENT
  Sex: Female

DRUGS (3)
  1. BENLYSTA [Suspect]
     Active Substance: BELIMUMAB
     Indication: Product used for unknown indication
     Dosage: 200 MG, WE
     Route: 042
     Dates: start: 202106
  2. TRESIBA [Concomitant]
     Active Substance: INSULIN DEGLUDEC
     Indication: Type 1 diabetes mellitus
     Dosage: 701 U
  3. APIDRA [Concomitant]
     Active Substance: INSULIN GLULISINE
     Indication: Type 1 diabetes mellitus
     Dosage: STARTED MORE THAN 5 YEARS AGO

REACTIONS (3)
  - Systemic inflammatory response syndrome [Unknown]
  - Hyperglycaemia [Not Recovered/Not Resolved]
  - Insulin resistant diabetes [Not Recovered/Not Resolved]

NARRATIVE: CASE EVENT DATE: 20210601
